FAERS Safety Report 19212234 (Version 1)
Quarter: 2021Q2

REPORT INFORMATION
  Report Type: Spontaneous
  Country: US (occurrence: US)
  Receive Date: 20210504
  Receipt Date: 20210504
  Transmission Date: 20210717
  Serious: No
  Sender: FDA-Public Use
  Company Number: None

PATIENT
  Age: 71 Year
  Sex: Male
  Weight: 127.01 kg

DRUGS (2)
  1. WARFARIN (WARFARIN NA (EXELAN) 5MG TAB) [Suspect]
     Active Substance: WARFARIN SODIUM
     Indication: ATRIAL FIBRILLATION
     Route: 048
     Dates: start: 20090713
  2. ASPIRIN/CAFFEINE (ASPIRIN 227.5MG/CAFFEINE 32.5MG TAB) [Suspect]
     Active Substance: ASPIRIN\CAFFEINE
     Indication: ATRIAL FIBRILLATION
     Dates: start: 20201110, end: 20210325

REACTIONS (3)
  - Anaemia [None]
  - Gastrointestinal haemorrhage [None]
  - Gastric ulcer [None]

NARRATIVE: CASE EVENT DATE: 20210325
